FAERS Safety Report 14194994 (Version 1)
Quarter: 2017Q4

REPORT INFORMATION
  Report Type: Spontaneous
  Country: US (occurrence: None)
  Receive Date: 20171115
  Receipt Date: 20171115
  Transmission Date: 20180321
  Serious: No
  Sender: FDA-Public Use
  Company Number: None

PATIENT
  Age: 44 Year
  Sex: Female

DRUGS (13)
  1. OXYCODONE [Concomitant]
     Active Substance: OXYCODONE
  2. TRAMADOL. [Concomitant]
     Active Substance: TRAMADOL
  3. DOXYCYCLINE. [Concomitant]
     Active Substance: DOXYCYCLINE
  4. NORVASC [Concomitant]
     Active Substance: AMLODIPINE BESYLATE
  5. COLACE [Concomitant]
     Active Substance: DOCUSATE SODIUM
  6. ZYRTEC [Concomitant]
     Active Substance: CETIRIZINE HYDROCHLORIDE
  7. NORCO [Concomitant]
     Active Substance: ACETAMINOPHEN\HYDROCODONE BITARTRATE
  8. DIFLUCAN [Concomitant]
     Active Substance: FLUCONAZOLE
  9. FLUORIDE [Concomitant]
     Active Substance: SODIUM FLUORIDE
  10. MVI [Concomitant]
     Active Substance: VITAMINS
  11. AMPYRA [Suspect]
     Active Substance: DALFAMPRIDINE
     Indication: MULTIPLE SCLEROSIS
     Route: 048
     Dates: start: 201608
  12. CITRATE OF MAGNESIUM [Concomitant]
     Active Substance: MAGNESIUM CITRATE
  13. NYSTATIN. [Concomitant]
     Active Substance: NYSTATIN

REACTIONS (2)
  - Abdominal pain lower [None]
  - Appendicitis [None]

NARRATIVE: CASE EVENT DATE: 20170518
